FAERS Safety Report 4846522-0 (Version None)
Quarter: 2005Q4

REPORT INFORMATION
  Report Type: 
  Country: None (occurrence: None)
  Receive Date: 20051201
  Receipt Date: 20051118
  Transmission Date: 20060501
  Serious: Yes (Other)
  Sender: FDA-Public Use
  Company Number: 2005158210

PATIENT
  Age: 57 Year
  Sex: Female

DRUGS (12)
  1. SOMATROPIN (SOMATROPIN) [Suspect]
     Indication: HYPOPITUITARISM
     Dosage: 1.5 I.U.,
     Dates: start: 19990301, end: 20010101
  2. CABERGOLINE [Concomitant]
  3. ESTROGENS SOL/INJ [Concomitant]
  4. LEVOTHYROXINE SODIUM [Suspect]
  5. HYDROCORTISONE [Concomitant]
  6. MEDROXYPROGESTERONE [Concomitant]
  7. HUMATROPE [Concomitant]
  8. CALCIUM (CALCIUM) [Concomitant]
  9. VITAMIN E [Concomitant]
  10. BUDESONIDE [Concomitant]
  11. ST JOHN WORT (HYPERICUM PERFORATUM) [Concomitant]
  12. DHEA (PRASTERONE) [Concomitant]

REACTIONS (8)
  - DIPLOPIA [None]
  - DISEASE PROGRESSION [None]
  - EYELID PTOSIS [None]
  - HODGKIN'S DISEASE STAGE III [None]
  - LYMPHADENOPATHY [None]
  - ORAL INFECTION [None]
  - SINUSITIS [None]
  - STEM CELL TRANSPLANT [None]
